FAERS Safety Report 6717871-6 (Version None)
Quarter: 2010Q2

REPORT INFORMATION
  Report Type: 
  Country: None (occurrence: None)
  Receive Date: 20100504
  Receipt Date: 20100419
  Transmission Date: 20101027
  Serious: Yes (Disabling, Other)
  Sender: FDA-Public Use
  Company Number: 010439

PATIENT
  Sex: Female
  Weight: 90.7 kg

DRUGS (4)
  1. LACOSAMIDE [Suspect]
     Indication: CONVULSION
     Dosage: (25-50MG GRADUALLY INCREASED OVER 2 WEEK PERIOD) ;  (100 MG BID)
     Dates: start: 20100201
  2. PHENOBARBITAL [Concomitant]
  3. LAMICTAL [Concomitant]
  4. TEGRETOL [Concomitant]

REACTIONS (5)
  - ABASIA [None]
  - BALANCE DISORDER [None]
  - DYSSTASIA [None]
  - MUSCULAR WEAKNESS [None]
  - PARALYSIS [None]
